FAERS Safety Report 5183564-2 (Version None)
Quarter: 2006Q4

REPORT INFORMATION
  Report Type: 
  Country: None (occurrence: None)
  Receive Date: 20061220
  Receipt Date: 20060123
  Transmission Date: 20070319
  Serious: No
  Sender: FDA-Public Use
  Company Number: US-GLAXOSMITHKLINE-A0590383A

PATIENT
  Age: 49 Year
  Sex: Female

DRUGS (1)
  1. TARGET NTS 21MG [Suspect]
     Indication: SMOKING CESSATION THERAPY
     Dates: start: 20060114, end: 20060114

REACTIONS (5)
  - BLOOD PRESSURE INCREASED [None]
  - CHEST PAIN [None]
  - CONTUSION [None]
  - PALPITATIONS [None]
  - RASH ERYTHEMATOUS [None]
